FAERS Safety Report 7897493-4 (Version None)
Quarter: 2011Q4

REPORT INFORMATION
  Report Type: 
  Country: None (occurrence: None)
  Receive Date: 20111107
  Receipt Date: 20111028
  Transmission Date: 20120403
  Serious: Yes (Hospitalization)
  Sender: FDA-Public Use
  Company Number: FR-ASTRAZENECA-2011SE48628

PATIENT
  Age: 19790 Day
  Sex: Female
  Weight: 55 kg

DRUGS (13)
  1. VANDETANIB [Suspect]
     Route: 048
     Dates: start: 20110715
  2. VANDETANIB [Suspect]
     Indication: THYROID CANCER
     Route: 048
     Dates: start: 20110527, end: 20110704
  3. LEVOTHYROXINE SODIUM [Concomitant]
     Indication: POST PROCEDURAL HYPOTHYROIDISM
     Route: 048
     Dates: start: 19831101
  4. LYRICA [Concomitant]
     Route: 048
     Dates: end: 20110704
  5. HYDROMORPHONE HCL [Concomitant]
     Indication: PAIN
     Route: 048
     Dates: start: 20110418, end: 20110704
  6. LYRICA [Concomitant]
     Indication: PAIN
     Route: 048
     Dates: start: 20110311, end: 20110615
  7. HYDROMORPHONE HCL [Concomitant]
     Route: 048
  8. STREPTOMYCIN SULFATE [Suspect]
  9. DOXYCYCLINE [Concomitant]
     Indication: TOXIC SKIN ERUPTION
     Route: 048
     Dates: start: 20110527
  10. IRBESARTAN [Concomitant]
     Indication: HYPERTENSION
     Route: 048
  11. EFFEXOR [Concomitant]
     Indication: DEPRESSION
     Route: 048
     Dates: start: 20110720
  12. IMODIUM [Concomitant]
     Indication: DIARRHOEA
     Route: 048
     Dates: start: 20110527
  13. TRAMADOL HCL [Concomitant]
     Indication: PAIN
     Route: 048
     Dates: start: 20110704

REACTIONS (8)
  - DIZZINESS [None]
  - NAUSEA [None]
  - DIARRHOEA [None]
  - RASH [None]
  - TINNITUS [None]
  - ASTHENIA [None]
  - DECREASED APPETITE [None]
  - HYPOACUSIS [None]
